FAERS Safety Report 23721218 (Version 5)
Quarter: 2025Q1

REPORT INFORMATION
  Report Type: Spontaneous
  Country: US (occurrence: US)
  Receive Date: 20240409
  Receipt Date: 20250212
  Transmission Date: 20250409
  Serious: Yes (Disabling, Other)
  Sender: AMGEN
  Company Number: US-HORIZON THERAPEUTICS-HZN-2024-003947

PATIENT
  Age: 38 Year
  Sex: Male
  Weight: 80 kg

DRUGS (40)
  1. TEPEZZA [Suspect]
     Active Substance: TEPROTUMUMAB-TRBW
     Indication: Endocrine ophthalmopathy
     Route: 042
     Dates: start: 20220225
  2. TEPEZZA [Suspect]
     Active Substance: TEPROTUMUMAB-TRBW
     Dosage: 20 MILLIGRAM/KILOGRAM, Q3WK (SECOND INFUSION)
     Route: 042
  3. TEPEZZA [Suspect]
     Active Substance: TEPROTUMUMAB-TRBW
     Dosage: 20 MILLIGRAM/KILOGRAM, Q3WK (THIRD INFUSION)
     Route: 042
  4. TEPEZZA [Suspect]
     Active Substance: TEPROTUMUMAB-TRBW
     Dosage: 20 MILLIGRAM/KILOGRAM, Q3WK (FOURTH INFUSION)
     Route: 042
  5. TEPEZZA [Suspect]
     Active Substance: TEPROTUMUMAB-TRBW
     Dosage: 20 MILLIGRAM/KILOGRAM (FIFTH INFUSION)
     Route: 042
  6. TEPEZZA [Suspect]
     Active Substance: TEPROTUMUMAB-TRBW
     Dosage: 20 MILLIGRAM/KILOGRAM, Q3WK (SIXTH INFUSION)
     Route: 040
     Dates: start: 20220610
  7. TEPEZZA [Suspect]
     Active Substance: TEPROTUMUMAB-TRBW
     Dosage: 20 MILLIGRAM/KILOGRAM (SEVENTH INFUSION)
     Route: 042
  8. TEPEZZA [Suspect]
     Active Substance: TEPROTUMUMAB-TRBW
     Dosage: 20 MILLIGRAM/KILOGRAM (EIGHT INFUSION)
     Route: 042
  9. PREDNISONE [Suspect]
     Active Substance: PREDNISONE
     Indication: Product used for unknown indication
     Dosage: 10 MILLIGRAM, QD (DAY1-4TAB, DAY 2-3TAB, DAY3-2TAB AND DAY 4 1TAB)
     Route: 048
  10. PREDNISONE [Suspect]
     Active Substance: PREDNISONE
     Route: 048
  11. LEVOTHYROXINE SODIUM [Concomitant]
     Active Substance: LEVOTHYROXINE SODIUM
     Route: 048
  12. ZOLOFT [Concomitant]
     Active Substance: SERTRALINE HYDROCHLORIDE
     Dosage: 25 MILLIGRAM, QD
     Route: 048
  13. CLEOCIN [Concomitant]
     Active Substance: CLINDAMYCIN PHOSPHATE
     Route: 065
  14. ISOVUE [Concomitant]
     Active Substance: IOPAMIDOL
     Route: 065
  15. ATENOLOL [Concomitant]
     Active Substance: ATENOLOL
     Route: 048
  16. HYDROXYZINE HYDROCHLORIDE [Concomitant]
     Active Substance: HYDROXYZINE HYDROCHLORIDE
     Dosage: 25 MILLIGRAM, QD
     Route: 048
  17. LEVOTHYROXINE [Concomitant]
     Active Substance: LEVOTHYROXINE
     Route: 048
  18. ALBUTEROL SULFATE [Concomitant]
     Active Substance: ALBUTEROL SULFATE
  19. FLONASE [Concomitant]
     Active Substance: FLUTICASONE PROPIONATE
     Dosage: UNK UNK, QD (ONE SPRAY IN EACH NOSTRILS)
     Route: 045
  20. DEVICE [Concomitant]
     Active Substance: DEVICE
     Dosage: UNK UNK, QD
     Route: 061
  21. SERTRALINE HYDROCHLORIDE [Concomitant]
     Active Substance: SERTRALINE HYDROCHLORIDE
     Dosage: 50 MILLIGRAM, QD
     Route: 048
  22. VALACYCLOVIR HYDROCHLORIDE [Concomitant]
     Active Substance: VALACYCLOVIR HYDROCHLORIDE
     Dosage: 1 GRAM, QD (TWO TABLETS EVERY DAY)
     Route: 048
  23. VYVANSE [Concomitant]
     Active Substance: LISDEXAMFETAMINE DIMESYLATE
     Dosage: 20 MILLIGRAM, QD
     Route: 048
  24. ZINC OXIDE [Concomitant]
     Active Substance: ZINC OXIDE
     Route: 061
  25. DESOWEN [Concomitant]
     Active Substance: DESONIDE
     Route: 061
  26. SULFAMETHOXAZOLE [Concomitant]
     Active Substance: SULFAMETHOXAZOLE
  27. CLINDAMYCIN [Concomitant]
     Active Substance: CLINDAMYCIN
  28. OMEPRAZOLE [Concomitant]
     Active Substance: OMEPRAZOLE
  29. FLOVENT [Concomitant]
     Active Substance: FLUTICASONE PROPIONATE
  30. FLUTICASONE PROPIONATE [Concomitant]
     Active Substance: FLUTICASONE PROPIONATE
  31. CITALOPRAM [Concomitant]
     Active Substance: CITALOPRAM
  32. METHYLPREDNISOLONE [Concomitant]
     Active Substance: METHYLPREDNISOLONE
     Route: 065
  33. CLOBETASOL [Concomitant]
     Active Substance: CLOBETASOL
  34. ACETAMINOPHEN [Concomitant]
     Active Substance: ACETAMINOPHEN
  35. OSELTAMIVIR [Concomitant]
     Active Substance: OSELTAMIVIR
  36. EPINEPHRINE [Concomitant]
     Active Substance: EPINEPHRINE
  37. TRINTELLIX [Concomitant]
     Active Substance: VORTIOXETINE HYDROBROMIDE
  38. GABAPENTIN [Concomitant]
     Active Substance: GABAPENTIN
  39. VITAMIN D2 [Concomitant]
     Active Substance: ERGOCALCIFEROL
  40. ZOLPIDEM [Concomitant]
     Active Substance: ZOLPIDEM TARTRATE

REACTIONS (52)
  - Deafness permanent [Not Recovered/Not Resolved]
  - Autoimmune disorder [Unknown]
  - Endocrine ophthalmopathy [Not Recovered/Not Resolved]
  - Graves^ disease [Not Recovered/Not Resolved]
  - IVth nerve paralysis [Unknown]
  - Lupus anticoagulant hypoprothrombinaemia syndrome [Unknown]
  - Systemic lupus erythematosus [Unknown]
  - Anxiety [Not Recovered/Not Resolved]
  - Emotional distress [Not Recovered/Not Resolved]
  - Cerumen impaction [Unknown]
  - Asthma [Unknown]
  - Ear infection [Unknown]
  - Myalgia [Unknown]
  - Arthralgia [Unknown]
  - Muscle spasms [Not Recovered/Not Resolved]
  - Headache [Unknown]
  - Pruritus [Unknown]
  - Disturbance in attention [Unknown]
  - Herpes virus infection [Unknown]
  - Seborrhoeic dermatitis [Unknown]
  - Attention deficit hyperactivity disorder [Unknown]
  - Upper-airway cough syndrome [Unknown]
  - Back pain [Unknown]
  - Spinal pain [Unknown]
  - Vitamin D deficiency [Unknown]
  - Dyslipidaemia [Unknown]
  - Skin swelling [Unknown]
  - Cellulitis [Unknown]
  - Dysphagia [Unknown]
  - Gluten sensitivity [Unknown]
  - Pyrexia [Unknown]
  - Fatigue [Unknown]
  - Chills [Unknown]
  - Night sweats [Unknown]
  - Viral upper respiratory tract infection [Unknown]
  - Weight abnormal [Unknown]
  - Eosinophilic oesophagitis [Unknown]
  - Carbon dioxide decreased [Unknown]
  - Total cholesterol/HDL ratio decreased [Unknown]
  - Blood cholesterol increased [Unknown]
  - Low density lipoprotein increased [Unknown]
  - Blood triglycerides increased [Unknown]
  - Very low density lipoprotein increased [Unknown]
  - Blood albumin increased [Unknown]
  - High density lipoprotein decreased [Unknown]
  - Anti-thyroid antibody increased [Unknown]
  - Protein total increased [Unknown]
  - Eosinophil count increased [Unknown]
  - Lymphocyte percentage decreased [Unknown]
  - Blood urea increased [Unknown]
  - Blood glucose increased [Unknown]
  - Skin mass [Unknown]

NARRATIVE: CASE EVENT DATE: 20210812
